FAERS Safety Report 5242083-5 (Version None)
Quarter: 2007Q1

REPORT INFORMATION
  Report Type: 
  Country: None (occurrence: None)
  Receive Date: 20070212
  Receipt Date: 20070201
  Transmission Date: 20070707
  Serious: Yes (Death)
  Sender: FDA-Public Use
  Company Number: 2007-00531

PATIENT
  Age: 32 Year
  Sex: 0

DRUGS (3)
  1. ADDERALL 10 [Suspect]
  2. VALPROIC ACID [Suspect]
  3. INSULIN(INSULIN) [Suspect]

REACTIONS (1)
  - CARDIO-RESPIRATORY ARREST [None]
